FAERS Safety Report 9301957 (Version 1)
Quarter: 2013Q2

REPORT INFORMATION
  Report Type: Report from Study
  Country: US (occurrence: US)
  Receive Date: 20130521
  Receipt Date: 20130521
  Transmission Date: 20140414
  Serious: Yes (Hospitalization)
  Sender: FDA-Public Use
  Company Number: US-US-EMD SERONO, INC.-7211554

PATIENT
  Age: 52 Year
  Sex: Male

DRUGS (2)
  1. EGRIFTA [Suspect]
     Indication: LIPODYSTROPHY ACQUIRED
     Dates: start: 20120130, end: 201304
  2. EGRIFTA [Suspect]
     Dates: start: 201305

REACTIONS (2)
  - Sepsis [Recovered/Resolved]
  - Shigella infection [Recovered/Resolved]
